FAERS Safety Report 5792307-0 (Version None)
Quarter: 2008Q2

REPORT INFORMATION
  Report Type: 
  Country: None (occurrence: None)
  Receive Date: 20080623
  Receipt Date: 20080609
  Transmission Date: 20081010
  Serious: Yes (Other)
  Sender: FDA-Public Use
  Company Number: GXKR2008IT05276

PATIENT
  Age: 24 Year
  Sex: Female

DRUGS (2)
  1. LEFLUNOMIDE [Suspect]
     Indication: ANKYLOSING SPONDYLITIS
     Dosage: 20 MG/DAY
  2. METHYLPREDNISOLONE [Concomitant]

REACTIONS (5)
  - CUTANEOUS LUPUS ERYTHEMATOSUS [None]
  - ERYTHEMA MULTIFORME [None]
  - MUCOSAL ULCERATION [None]
  - ODYNOPHAGIA [None]
  - PHOTOPHOBIA [None]
